FAERS Safety Report 18075740 (Version 1)
Quarter: 2020Q3

REPORT INFORMATION
  Report Type: Spontaneous
  Country: US (occurrence: US)
  Receive Date: 20200727
  Receipt Date: 20200727
  Transmission Date: 20201103
  Serious: No
  Sender: FDA-Public Use
  Company Number: US-ABBVIE-20K-163-3371490-00

PATIENT
  Sex: Male

DRUGS (1)
  1. SYNTHROID [Suspect]
     Active Substance: LEVOTHYROXINE SODIUM
     Indication: PRODUCT USED FOR UNKNOWN INDICATION
     Route: 048
     Dates: end: 20200227

REACTIONS (15)
  - Malabsorption from administration site [Unknown]
  - Thyroid function test abnormal [Unknown]
  - Dyspepsia [Unknown]
  - Depression [Unknown]
  - Vomiting [Recovered/Resolved]
  - Purpura [Unknown]
  - Haemorrhoids thrombosed [Unknown]
  - Petechiae [Unknown]
  - Abdominal distension [Not Recovered/Not Resolved]
  - Loss of libido [Unknown]
  - Illness [Unknown]
  - Illness [Recovered/Resolved]
  - Pain [Unknown]
  - Nausea [Recovered/Resolved]
  - Vomiting [Recovered/Resolved]

NARRATIVE: CASE EVENT DATE: 201908
